FAERS Safety Report 7683072-0 (Version None)
Quarter: 2011Q3

REPORT INFORMATION
  Report Type: 
  Country: None (occurrence: None)
  Receive Date: 20110815
  Receipt Date: 20110808
  Transmission Date: 20111222
  Serious: Yes (Other)
  Sender: FDA-Public Use
  Company Number: US-CEPHALON-US021777

PATIENT
  Sex: Male
  Weight: 73 kg

DRUGS (10)
  1. SEROQUEL [Suspect]
     Indication: INSOMNIA
  2. VIVITROL [Suspect]
     Indication: ALCOHOLISM
     Dosage: Q MONTH
     Route: 030
     Dates: start: 20071003
  3. REQUIP [Concomitant]
     Indication: RESTLESS LEGS SYNDROME
     Route: 048
     Dates: start: 20020101
  4. FLOMAX [Concomitant]
     Indication: BENIGN PROSTATIC HYPERPLASIA
     Route: 048
     Dates: start: 20020101
  5. LIPITOR [Concomitant]
     Indication: BLOOD CHOLESTEROL INCREASED
     Route: 048
     Dates: start: 19970101
  6. EFFEXOR [Suspect]
     Indication: DEPRESSION
     Route: 048
     Dates: start: 20070701
  7. REMERON [Suspect]
     Indication: INSOMNIA
     Route: 048
     Dates: start: 20070701
  8. PROVIGIL [Suspect]
     Route: 048
  9. SEROQUEL [Suspect]
     Indication: DEPRESSION
     Dosage: 50MG BID AND 800MG HS
     Route: 065
  10. NEXIUM [Concomitant]
     Indication: ABDOMINAL DISCOMFORT
     Route: 048

REACTIONS (3)
  - DRUG INTERACTION [None]
  - BIPOLAR DISORDER [None]
  - OBSESSIVE-COMPULSIVE DISORDER [None]
